FAERS Safety Report 4941670-9 (Version None)
Quarter: 2006Q1

REPORT INFORMATION
  Report Type: 
  Country: None (occurrence: None)
  Receive Date: 20060313
  Receipt Date: 20060301
  Transmission Date: 20060701
  Serious: Yes (Other)
  Sender: FDA-Public Use
  Company Number: US-ROCHE-438810

PATIENT
  Age: 46 Year
  Sex: Female

DRUGS (2)
  1. PEGASYS [Suspect]
     Route: 058
     Dates: start: 20051115
  2. COPEGUS [Suspect]
     Route: 048
     Dates: start: 20051115

REACTIONS (5)
  - BREAST MASS [None]
  - CHAPPED LIPS [None]
  - MOUTH ULCERATION [None]
  - PYREXIA [None]
  - WEIGHT DECREASED [None]
